FAERS Safety Report 11413299 (Version 1)
Quarter: 2015Q3

REPORT INFORMATION
  Report Type: Spontaneous
  Country: US (occurrence: US)
  Receive Date: 20150821
  Receipt Date: 20150821
  Transmission Date: 20151125
  Serious: No
  Sender: FDA-Public Use
  Company Number: US-ELI_LILLY_AND_COMPANY-US201106000988

PATIENT
  Age: 77 Year
  Sex: Female

DRUGS (4)
  1. HUMULIN N [Suspect]
     Active Substance: INSULIN HUMAN
     Dosage: 20 U, UNKNOWN
  2. HUMULIN N [Suspect]
     Active Substance: INSULIN HUMAN
     Indication: DIABETES MELLITUS
     Dosage: 15 U, UNKNOWN
     Dates: start: 20110415
  3. GLIPIZIDE. [Concomitant]
     Active Substance: GLIPIZIDE
     Dosage: UNK
  4. HUMULIN N [Suspect]
     Active Substance: INSULIN HUMAN
     Dosage: 5 U, UNKNOWN

REACTIONS (6)
  - Asthenia [Unknown]
  - Feeling cold [Unknown]
  - Medication error [Unknown]
  - Blood glucose increased [Unknown]
  - Tremor [Unknown]
  - Blood glucose decreased [Unknown]

NARRATIVE: CASE EVENT DATE: 20110601
